FAERS Safety Report 9220060 (Version 2)
Quarter: 2013Q2

REPORT INFORMATION
  Report Type: Spontaneous
  Country: FR (occurrence: FR)
  Receive Date: 20130409
  Receipt Date: 20130513
  Transmission Date: 20140414
  Serious: Yes (Hospitalization)
  Sender: FDA-Public Use
  Company Number: FR-ROCHE-1210427

PATIENT
  Age: 45 Year
  Sex: Female

DRUGS (1)
  1. ACTILYSE [Suspect]
     Indication: CEREBROVASCULAR ACCIDENT
     Route: 042

REACTIONS (3)
  - Myocardial infarction [Unknown]
  - Coronary artery thrombosis [Unknown]
  - Haematoma [Unknown]
